FAERS Safety Report 7064589-9 (Version None)
Quarter: 2010Q4

REPORT INFORMATION
  Report Type: 
  Country: None (occurrence: None)
  Receive Date: 20101027
  Receipt Date: 20101019
  Transmission Date: 20110411
  Serious: Yes (Congenital Anomaly)
  Sender: FDA-Public Use
  Company Number: US-ASTRAZENECA-2010SE44479

PATIENT
  Sex: Male

DRUGS (3)
  1. SEROQUEL XR [Suspect]
     Route: 064
  2. ADDERALL 10 [Suspect]
     Route: 064
  3. CYMBALTA [Suspect]
     Route: 064

REACTIONS (1)
  - STRABISMUS [None]
